FAERS Safety Report 21909537 (Version 1)
Quarter: 2023Q1

REPORT INFORMATION
  Report Type: Spontaneous
  Country: DK (occurrence: DK)
  Receive Date: 20230125
  Receipt Date: 20230125
  Transmission Date: 20230417
  Serious: Yes (Hospitalization, Disabling, Other)
  Sender: FDA-Public Use
  Company Number: None

PATIENT
  Age: 75 Year
  Sex: Female

DRUGS (5)
  1. CYCLOPHOSPHAMIDE [Suspect]
     Active Substance: CYCLOPHOSPHAMIDE
     Indication: Haemolytic anaemia
     Dosage: 50 MG, QD, STRENGTH 50 MG
     Route: 048
     Dates: start: 20210119, end: 20210215
  2. PREDNISOLONE [Suspect]
     Active Substance: PREDNISOLONE
     Indication: Haemolytic anaemia
     Dosage: 75 MG, QD, STRENGTH: 25 MG
     Route: 048
     Dates: start: 20210107
  3. RUXIENCE [Suspect]
     Active Substance: RITUXIMAB-PVVR
     Indication: Chronic lymphocytic leukaemia
     Dosage: GIVEN ON 19JAN2021, 25JAN2021, 01FEB2021 AND 08FEB2021
     Route: 042
     Dates: start: 20210119, end: 20210208
  4. IMBRUVICA [Suspect]
     Active Substance: IBRUTINIB
     Indication: Chronic lymphocytic leukaemia
     Dosage: 420 MG, QD, STRENGTH: 420 MG
     Route: 048
     Dates: start: 20210215, end: 20210709
  5. PANTOPRAZOLE SODIUM [Concomitant]
     Active Substance: PANTOPRAZOLE SODIUM
     Indication: Gastric pH decreased
     Route: 065
     Dates: start: 20210107

REACTIONS (5)
  - Hemianopia homonymous [Not Recovered/Not Resolved]
  - Central vision loss [Not Recovered/Not Resolved]
  - Progressive multifocal leukoencephalopathy [Not Recovered/Not Resolved]
  - Vision blurred [Not Recovered/Not Resolved]
  - Visual impairment [Not Recovered/Not Resolved]
